FAERS Safety Report 8819100 (Version 1)
Quarter: 2012Q4

REPORT INFORMATION
  Report Type: Report from Study
  Country: CA (occurrence: CA)
  Receive Date: 20121001
  Receipt Date: 20121001
  Transmission Date: 20130627
  Serious: Yes (Other)
  Sender: FDA-Public Use
  Company Number: CA-JNJFOC-20120910120

PATIENT
  Age: 36 None
  Sex: Male
  Weight: 102.2 kg

DRUGS (3)
  1. REMICADE [Suspect]
     Indication: COLITIS ULCERATIVE
     Route: 042
     Dates: start: 20120920
  2. REMICADE [Suspect]
     Indication: COLITIS ULCERATIVE
     Route: 042
     Dates: start: 200908
  3. IMURAN [Concomitant]
     Route: 065

REACTIONS (2)
  - Ocular hyperaemia [Unknown]
  - Scleral discolouration [Unknown]
